FAERS Safety Report 14649675 (Version 4)
Quarter: 2022Q1

REPORT INFORMATION
  Report Type: Report from Study
  Country: IT (occurrence: IT)
  Receive Date: 20180316
  Receipt Date: 20220128
  Transmission Date: 20220424
  Serious: Yes (Life-Threatening, Hospitalization, Other)
  Sender: FDA-Public Use
  Company Number: IT-002147023-PHHY2017IT021869

PATIENT
  Age: 13 Year
  Sex: Male
  Weight: 44 kg

DRUGS (30)
  1. VINCRISTINE SULFATE [Suspect]
     Active Substance: VINCRISTINE SULFATE
     Indication: Acute lymphocytic leukaemia
     Dosage: 2 MG, CYCLIC
     Route: 042
     Dates: start: 20170102, end: 20170223
  2. VINCRISTINE SULFATE [Suspect]
     Active Substance: VINCRISTINE SULFATE
     Dosage: 2 MG, QD
     Route: 050
     Dates: start: 20161016, end: 20161016
  3. VINCRISTINE SULFATE [Suspect]
     Active Substance: VINCRISTINE SULFATE
     Dosage: 2 MG, QD (EV ROUTE)
     Route: 050
     Dates: start: 20161011, end: 20161011
  4. VINCRISTINE SULFATE [Suspect]
     Active Substance: VINCRISTINE SULFATE
     Dosage: 2 MG, (EV ROUTE)
     Route: 050
     Dates: start: 20170619, end: 20170619
  5. DOXORUBICIN HYDROCHLORIDE [Suspect]
     Active Substance: DOXORUBICIN HYDROCHLORIDE
     Indication: Acute lymphocytic leukaemia
     Dosage: 44.1 MG, CYCLIC
     Route: 042
     Dates: end: 20170220
  6. DOXORUBICIN HYDROCHLORIDE [Suspect]
     Active Substance: DOXORUBICIN HYDROCHLORIDE
     Dosage: 34.5 MG, (EV ROUTE)
     Route: 050
     Dates: start: 20170619, end: 20170619
  7. DEXAMETHASONE SODIUM PHOSPHATE [Suspect]
     Active Substance: DEXAMETHASONE SODIUM PHOSPHATE
     Indication: Chemotherapy
     Dosage: 30 MG, QD (EV ROUTE)
     Route: 050
     Dates: start: 20161011, end: 20161015
  8. DEXAMETHASONE SODIUM PHOSPHATE [Suspect]
     Active Substance: DEXAMETHASONE SODIUM PHOSPHATE
     Dosage: 13.8 MG, UNK
     Route: 048
     Dates: start: 20170605, end: 20170629
  9. GLIVEC [Suspect]
     Active Substance: IMATINIB MESYLATE
     Indication: Acute lymphocytic leukaemia
     Dosage: 300 OT, UNK
     Route: 048
     Dates: start: 20160721
  10. GLIVEC [Suspect]
     Active Substance: IMATINIB MESYLATE
     Indication: Philadelphia chromosome positive
     Dosage: 500 MG ALTERNATED WITH 400 MG DAILY
     Route: 048
  11. GLIVEC [Suspect]
     Active Substance: IMATINIB MESYLATE
     Dosage: 441 MG, QD
     Route: 048
     Dates: start: 20170102
  12. GLIVEC [Suspect]
     Active Substance: IMATINIB MESYLATE
     Dosage: UNK
     Route: 048
     Dates: end: 20161219
  13. ASPARAGINASE [Suspect]
     Active Substance: ASPARAGINASE
     Indication: Acute lymphocytic leukaemia
     Dosage: 29400 IU, UNK
     Route: 042
     Dates: end: 20170130
  14. POTASSIUM CHLORIDE [Concomitant]
     Active Substance: POTASSIUM CHLORIDE
     Dosage: 4 DF, QD
     Route: 065
  15. CEFTAZIDIME [Concomitant]
     Active Substance: CEFTAZIDIME
     Dosage: 1800 MG, 3X/DAY TID (EV ROUTE)
     Route: 042
     Dates: start: 20170702, end: 20170708
  16. ASPARAGINASE [Concomitant]
     Active Substance: ASPARAGINASE
     Dosage: 30000 UL, QD (EV ROUTE)
     Route: 050
     Dates: start: 20161215, end: 20161227
  17. METHOTREXATE [Concomitant]
     Active Substance: METHOTREXATE
     Dosage: 12 MG, QD
     Route: 037
     Dates: start: 20161011, end: 20161011
  18. METHOTREXATE [Concomitant]
     Active Substance: METHOTREXATE
     Dosage: 7700 MG, QD (EV ROUTE)
     Route: 065
     Dates: start: 20161011, end: 20161011
  19. METHOTREXATE [Concomitant]
     Active Substance: METHOTREXATE
     Dosage: UNK
     Route: 065
     Dates: start: 20161108
  20. DECADRON [Concomitant]
     Active Substance: DEXAMETHASONE
     Dosage: UNK
     Route: 065
  21. ENALAPRIL MALEATE [Concomitant]
     Active Substance: ENALAPRIL MALEATE
     Dosage: UNK
     Route: 065
     Dates: start: 20170205
  22. PEGASPARGASE [Concomitant]
     Active Substance: PEGASPARGASE
     Dosage: 1540 UL, QD (EV ROUTE)
     Route: 050
     Dates: start: 20161016, end: 20161016
  23. ETOPOSIDE [Concomitant]
     Active Substance: ETOPOSIDE
     Dosage: 154 MG, 2X/DAYBID (EV ROUTE)
     Route: 050
     Dates: start: 20161212, end: 20161214
  24. BACTRIM [Concomitant]
     Active Substance: SULFAMETHOXAZOLE\TRIMETHOPRIM
     Dosage: 1X2 TABLET/DAY
     Route: 065
  25. OMEPRAZOLE [Concomitant]
     Active Substance: OMEPRAZOLE
     Dosage: 40 MG, UNK
     Route: 042
  26. CYTARABINE [Concomitant]
     Active Substance: CYTARABINE
     Dosage: 3080 MG, 2X/DAYBID (EV ROUTE)
     Route: 050
     Dates: start: 20161210, end: 20161214
  27. CYTARABINE [Concomitant]
     Active Substance: CYTARABINE
     Dosage: 30 MG, QD
     Route: 037
     Dates: start: 20161011, end: 20161011
  28. CYTARABINE [Concomitant]
     Active Substance: CYTARABINE
     Dosage: 3080 MG, BID (EV ROUTE)
     Route: 050
     Dates: start: 20161015, end: 20161015
  29. CYCLOPHOSPHAMIDE [Concomitant]
     Active Substance: CYCLOPHOSPHAMIDE
     Dosage: 308 MG, QD (EV ROUTE)
     Route: 050
     Dates: start: 20161012, end: 20161014
  30. METHYLPREDNISOLONE [Concomitant]
     Active Substance: METHYLPREDNISOLONE
     Dosage: 10 MG, QD
     Route: 037
     Dates: start: 20161214, end: 20161214

REACTIONS (29)
  - Lipase increased [Recovered/Resolved]
  - Bone marrow failure [Recovered/Resolved]
  - Pneumonia [Recovered/Resolved]
  - Pneumonia [Recovered/Resolved]
  - Neutropenia [Recovered/Resolved]
  - Neutropenia [Recovered/Resolved]
  - Cytogenetic analysis abnormal [Not Recovered/Not Resolved]
  - Arthralgia [Not Recovered/Not Resolved]
  - Pyrexia [Unknown]
  - Neutropenia [Not Recovered/Not Resolved]
  - Sinus tachycardia [Recovered/Resolved]
  - Bone marrow failure [Recovered/Resolved]
  - Pneumonia [Recovered/Resolved]
  - Hyponatraemia [Recovered/Resolved]
  - Pneumonia [Recovered/Resolved]
  - Thrombocytopenia [Unknown]
  - Haematochezia [Unknown]
  - Pulmonary mass [Unknown]
  - Platelet count decreased [Unknown]
  - Catarrh [Recovering/Resolving]
  - Drug level increased [Unknown]
  - Herpes virus infection [Unknown]
  - Bronchitis [Unknown]
  - Cough [Recovering/Resolving]
  - Hypertension [Unknown]
  - Anaemia [Unknown]
  - Hypotension [Unknown]
  - Abdominal pain [Unknown]
  - Asthenia [Unknown]

NARRATIVE: CASE EVENT DATE: 20160804
